FAERS Safety Report 11872662 (Version 1)
Quarter: 2015Q4

REPORT INFORMATION
  Report Type: Report from Study
  Country: JP (occurrence: JP)
  Receive Date: 20151228
  Receipt Date: 20151228
  Transmission Date: 20160305
  Serious: Yes (Death)
  Sender: FDA-Public Use
  Company Number: JP-OTSUKA-2015_017323

PATIENT
  Sex: Male

DRUGS (12)
  1. PREDNISOLONE. [Concomitant]
     Active Substance: PREDNISOLONE
     Indication: PRODUCT USED FOR UNKNOWN INDICATION
     Dosage: 20 MG, DAILY DOSE
     Route: 048
     Dates: end: 20150816
  2. TOLVAPTAN [Suspect]
     Active Substance: TOLVAPTAN
     Indication: FLUID RETENTION
     Dosage: 7.5 MG, QD(EVERY MORNING)
     Route: 048
     Dates: start: 20150731, end: 20150827
  3. BIO-THREE [Concomitant]
     Active Substance: HERBALS
     Indication: PRODUCT USED FOR UNKNOWN INDICATION
     Dosage: 3 DF, DAILY DOSE
     Route: 048
     Dates: start: 20150801, end: 20150827
  4. LANIRAPID [Concomitant]
     Active Substance: METILDIGOXIN
     Indication: PRODUCT USED FOR UNKNOWN INDICATION
     Dosage: 0.1 MG, DAILY DOSE
     Route: 048
     Dates: end: 20150829
  5. ALLOPURINOL. [Concomitant]
     Active Substance: ALLOPURINOL
     Indication: PRODUCT USED FOR UNKNOWN INDICATION
     Dosage: 100 MG, DAILY DOSE
     Route: 048
     Dates: start: 20150801, end: 20150827
  6. PARIET [Concomitant]
     Active Substance: RABEPRAZOLE SODIUM
     Indication: PRODUCT USED FOR UNKNOWN INDICATION
     Dosage: 20 MG, DAILY DOSE
     Route: 048
     Dates: end: 20150817
  7. NAPROXEN. [Concomitant]
     Active Substance: NAPROXEN
     Indication: PRODUCT USED FOR UNKNOWN INDICATION
     Dosage: 300 MG, DAILY DOSE
     Route: 048
     Dates: end: 20150827
  8. ALUMINIUM SILICATE [Concomitant]
     Indication: PRODUCT USED FOR UNKNOWN INDICATION
     Dosage: 6 G, DAILY DOSE
     Route: 048
     Dates: end: 20150827
  9. ITOROL [Concomitant]
     Active Substance: ISOSORBIDE MONONITRATE
     Indication: PRODUCT USED FOR UNKNOWN INDICATION
     Dosage: 20 MG, DAILY DOSE
     Route: 048
     Dates: end: 20150828
  10. REBAMIPIDE [Concomitant]
     Active Substance: REBAMIPIDE
     Indication: PRODUCT USED FOR UNKNOWN INDICATION
     Dosage: 200 MG, DAILY DOSE
     Route: 048
     Dates: end: 20150816
  11. FENTANYL CITRATE. [Concomitant]
     Active Substance: FENTANYL CITRATE
     Indication: PRODUCT USED FOR UNKNOWN INDICATION
     Dosage: 1 DF, DAILY DOSE
     Route: 062
     Dates: start: 20150825, end: 20150829
  12. DABIGATRAN ETEXILATE [Concomitant]
     Active Substance: DABIGATRAN ETEXILATE
     Indication: PRODUCT USED FOR UNKNOWN INDICATION
     Dosage: 220 MG, DAILY DOSE
     Route: 048
     Dates: end: 20150827

REACTIONS (1)
  - Death [Fatal]
